FAERS Safety Report 16070707 (Version 2)
Quarter: 2020Q2

REPORT INFORMATION
  Report Type: Spontaneous
  Country: CA (occurrence: CA)
  Receive Date: 20190314
  Receipt Date: 20200424
  Transmission Date: 20200713
  Serious: Yes (Other)
  Sender: FDA-Public Use
  Company Number: CA-BAXTER-2019BAX005005

PATIENT

DRUGS (1)
  1. OSMITROL [Suspect]
     Active Substance: MANNITOL
     Indication: INTRACRANIAL PRESSURE INCREASED
     Dosage: DOSAGE FORM: SOLUTION INTRAVENOUS
     Route: 042

REACTIONS (1)
  - Anaphylactic reaction [Unknown]
